FAERS Safety Report 9630897 (Version 1)
Quarter: 2013Q4

REPORT INFORMATION
  Report Type: Spontaneous
  Country: US (occurrence: None)
  Receive Date: 20131015
  Receipt Date: 20131015
  Transmission Date: 20140711
  Serious: Yes (Other)
  Sender: FDA-Public Use
  Company Number: 2013TP000570

PATIENT
  Age: 79 Year
  Sex: Female

DRUGS (2)
  1. LIDODERM (5 PCT) [Suspect]
     Indication: BACK PAIN
     Route: 061
  2. ALL OTHER THERAPEUTIC PRODUCTS [Concomitant]

REACTIONS (4)
  - Surgery [None]
  - Neck surgery [None]
  - Spinal operation [None]
  - Product adhesion issue [None]
